FAERS Safety Report 14994816 (Version 2)
Quarter: 2018Q2

REPORT INFORMATION
  Report Type: Spontaneous
  Country: US (occurrence: US)
  Receive Date: 20180611
  Receipt Date: 20180626
  Transmission Date: 20180711
  Serious: Yes (Other)
  Sender: FDA-Public Use
  Company Number: US-BAYER-2018-110337

PATIENT
  Sex: Female

DRUGS (1)
  1. MIRENA [Suspect]
     Active Substance: LEVONORGESTREL
     Dosage: 20 MCG/24HR, CONT
     Route: 015
     Dates: start: 201512

REACTIONS (5)
  - Headache [Recovered/Resolved]
  - Dizziness [None]
  - Genital haemorrhage [Recovered/Resolved]
  - Vomiting [Recovering/Resolving]
  - Lip pain [None]

NARRATIVE: CASE EVENT DATE: 201805
